FAERS Safety Report 6292494-4 (Version None)
Quarter: 2009Q3

REPORT INFORMATION
  Report Type: 
  Country: None (occurrence: None)
  Receive Date: 20090731
  Receipt Date: 20090727
  Transmission Date: 20100115
  Serious: Yes (Other)
  Sender: FDA-Public Use
  Company Number: FR-AVENTIS-200912786FR

PATIENT
  Sex: Female

DRUGS (1)
  1. LOVENOX [Suspect]
     Indication: ACCIDENTAL EXPOSURE
     Dates: start: 20090710, end: 20090710

REACTIONS (2)
  - ACCIDENTAL NEEDLE STICK [None]
  - PRODUCT QUALITY ISSUE [None]
